FAERS Safety Report 17847138 (Version 2)
Quarter: 2022Q3

REPORT INFORMATION
  Report Type: Report from Study
  Country: KR (occurrence: KR)
  Receive Date: 20200601
  Receipt Date: 20220923
  Transmission Date: 20221027
  Serious: Yes (Hospitalization, Other)
  Sender: FDA-Public Use
  Company Number: KR-PFIZER INC-2020148089

PATIENT
  Age: 60 Year
  Sex: Male
  Weight: 63 kg

DRUGS (19)
  1. AVELUMAB [Suspect]
     Active Substance: AVELUMAB
     Indication: Non-small cell lung cancer
     Route: 042
     Dates: start: 20181212, end: 20200310
  2. AXITINIB [Suspect]
     Active Substance: AXITINIB
     Indication: Non-small cell lung cancer
     Route: 048
     Dates: start: 20181212, end: 20190220
  3. AXITINIB [Suspect]
     Active Substance: AXITINIB
     Route: 048
     Dates: start: 20190226, end: 20190624
  4. AXITINIB [Suspect]
     Active Substance: AXITINIB
     Route: 048
     Dates: start: 20190703, end: 20190715
  5. AXITINIB [Suspect]
     Active Substance: AXITINIB
     Route: 048
     Dates: start: 20190730, end: 20190910
  6. DIVALTAN [Concomitant]
     Indication: Hypertension
     Route: 048
     Dates: start: 2015
  7. ASPIRIN [Concomitant]
     Active Substance: ASPIRIN
     Indication: Hyperlipidaemia
     Route: 048
     Dates: start: 2015
  8. CHOLINE FENOFIBRATE [Concomitant]
     Active Substance: CHOLINE FENOFIBRATE
     Indication: Hyperlipidaemia
     Route: 048
     Dates: start: 2015
  9. PITAVASTATIN CALCIUM [Concomitant]
     Active Substance: PITAVASTATIN CALCIUM
     Indication: Hyperlipidaemia
     Route: 048
     Dates: start: 2015
  10. METFORMIN HYDROCHLORIDE [Concomitant]
     Active Substance: METFORMIN HYDROCHLORIDE
     Indication: Diabetes mellitus
     Route: 048
     Dates: start: 20190720
  11. ARICEPT [Concomitant]
     Active Substance: DONEPEZIL HYDROCHLORIDE
     Indication: Dementia
     Route: 048
     Dates: start: 20191226
  12. CAROL-F [Concomitant]
     Indication: Tumour pain
     Route: 048
     Dates: start: 20190527
  13. LACTULOSE [Concomitant]
     Active Substance: LACTULOSE
     Indication: Constipation
     Route: 048
     Dates: start: 20191217
  14. PLAVIX [Concomitant]
     Active Substance: CLOPIDOGREL BISULFATE
     Indication: Prophylaxis
     Route: 048
     Dates: start: 20200318
  15. ASPIRIN [Concomitant]
     Active Substance: ASPIRIN
     Indication: Prophylaxis
     Route: 048
     Dates: start: 20200320
  16. CRESTOR [Concomitant]
     Active Substance: ROSUVASTATIN CALCIUM
     Indication: Hyperlipidaemia
     Route: 048
     Dates: start: 20200321
  17. NORZYME 25000 [Concomitant]
     Indication: Prophylaxis
     Route: 048
     Dates: start: 20200325
  18. DILTIAZEM HYDROCHLORIDE [Concomitant]
     Active Substance: DILTIAZEM HYDROCHLORIDE
     Indication: Prophylaxis
     Route: 048
     Dates: start: 20200327
  19. PREDNISOLONE [Concomitant]
     Active Substance: PREDNISOLONE
     Indication: Cerebral infarction
     Route: 048
     Dates: start: 20200331, end: 20200407

REACTIONS (1)
  - Hepatitis [Not Recovered/Not Resolved]

NARRATIVE: CASE EVENT DATE: 20200407
